FAERS Safety Report 22030718 (Version 2)
Quarter: 2023Q1

REPORT INFORMATION
  Report Type: Spontaneous
  Country: DE (occurrence: DE)
  Receive Date: 20230223
  Receipt Date: 20230312
  Transmission Date: 20230417
  Serious: Yes (Hospitalization, Other)
  Sender: FDA-Public Use
  Company Number: DE-BRISTOL-MYERS SQUIBB COMPANY-2023-006204

PATIENT
  Age: 65 Year
  Sex: Female
  Weight: 74.5 kg

DRUGS (11)
  1. CARBOPLATIN [Suspect]
     Active Substance: CARBOPLATIN
     Indication: Non-small cell lung cancer
     Dosage: 600 MG, Q3W
     Route: 042
     Dates: start: 20221215, end: 20230111
  2. PACLITAXEL [Suspect]
     Active Substance: PACLITAXEL
     Indication: Product used for unknown indication
     Dosage: UNK
     Route: 065
  3. OPDIVO [Suspect]
     Active Substance: NIVOLUMAB
     Indication: Non-small cell lung cancer
     Dosage: 360 MG, Q3W
     Route: 042
     Dates: start: 20221215
  4. YERVOY [Suspect]
     Active Substance: IPILIMUMAB
     Indication: Non-small cell lung cancer
     Dosage: 75 MG, Q3W
     Route: 042
     Dates: start: 20221215
  5. FAMOTIDINE [Concomitant]
     Active Substance: FAMOTIDINE
     Indication: Prophylaxis
     Dosage: UNK
     Route: 065
     Dates: start: 20221215
  6. PANTOPRAZOLE [Concomitant]
     Active Substance: PANTOPRAZOLE
     Indication: Prophylaxis
     Dosage: UNK
     Route: 065
  7. CLEMASTINE [Concomitant]
     Active Substance: CLEMASTINE
     Indication: Prophylaxis
     Dosage: UNK
     Route: 065
     Dates: start: 20221215
  8. DEXAMETHASONE [Concomitant]
     Active Substance: DEXAMETHASONE
     Indication: Prophylaxis
     Dosage: UNK
     Route: 065
     Dates: start: 20221215
  9. FOLIC ACID [Concomitant]
     Active Substance: FOLIC ACID
     Indication: Prophylaxis
     Dosage: UNK
     Route: 065
  10. LIPEGFILGRASTIM [Concomitant]
     Active Substance: LIPEGFILGRASTIM
     Indication: Prophylaxis
     Dosage: UNK
     Route: 065
     Dates: start: 20221216
  11. GRANISETRON [Concomitant]
     Active Substance: GRANISETRON
     Indication: Prophylaxis
     Dosage: UNK
     Route: 065
     Dates: start: 20221215

REACTIONS (4)
  - Pneumonia [Recovered/Resolved]
  - Pneumonitis [Unknown]
  - Arthralgia [Recovered/Resolved]
  - Intentional product use issue [Unknown]

NARRATIVE: CASE EVENT DATE: 20221201
